FAERS Safety Report 14102485 (Version 3)
Quarter: 2017Q4

REPORT INFORMATION
  Report Type: Report from Study
  Country: JP (occurrence: JP)
  Receive Date: 20171018
  Receipt Date: 20171107
  Transmission Date: 20180321
  Serious: Yes (Hospitalization)
  Sender: FDA-Public Use
  Company Number: JP-PFIZER INC-2017433690

PATIENT
  Age: 71 Year
  Sex: Female
  Weight: 44 kg

DRUGS (10)
  1. MAGNESIUM OXIDE. [Concomitant]
     Active Substance: MAGNESIUM OXIDE
     Indication: CONSTIPATION
     Dosage: 330 MG, 3X/DAY
     Route: 048
     Dates: start: 20170802
  2. OXALIPLATIN. [Suspect]
     Active Substance: OXALIPLATIN
     Indication: ADENOCARCINOMA GASTRIC
     Dosage: 166 MG, CYCLIC (ONCE EVERY 2 WEEKS)
     Route: 042
     Dates: start: 20170801, end: 20170912
  3. OXALIPLATIN. [Suspect]
     Active Substance: OXALIPLATIN
     Dosage: 166 MG, CYCLIC (ONCE EVERY 2 WEEKS)
     Route: 042
  4. OXALIPLATIN. [Suspect]
     Active Substance: OXALIPLATIN
     Dosage: 166 MG, CYCLIC (ONCE EVERY 2 WEEKS)
     Route: 042
  5. CAPECITABINE. [Suspect]
     Active Substance: CAPECITABINE
     Indication: ADENOCARCINOMA GASTRIC
     Dosage: 1300 MG, 2X/DAY
     Route: 048
     Dates: start: 20170801, end: 20170926
  6. CAPECITABINE. [Suspect]
     Active Substance: CAPECITABINE
     Dosage: 750 MG, 2X/DAY
     Route: 048
     Dates: start: 20171011
  7. OXALIPLATIN. [Suspect]
     Active Substance: OXALIPLATIN
     Dosage: 166 MG, CYCLIC (ONCE EVERY 2 WEEKS)
     Route: 042
     Dates: start: 20171011
  8. VONOPRAZAN FUMARATE [Concomitant]
     Active Substance: VONOPRAZAN FUMURATE
     Indication: ABDOMINAL PAIN UPPER
     Dosage: 20 MG, 1X/DAY
     Route: 048
     Dates: start: 20170613
  9. SENNOSIDE /00571902/ [Concomitant]
     Active Substance: SENNOSIDES A AND B
     Indication: CONSTIPATION
     Dosage: 24 MG, UNK
     Route: 048
     Dates: start: 20170802
  10. CELECOXIB. [Concomitant]
     Active Substance: CELECOXIB
     Indication: ABDOMINAL PAIN UPPER
     Dosage: 100 MG, 2X/DAY
     Route: 048
     Dates: start: 20170613

REACTIONS (1)
  - Enterocolitis [Recovered/Resolved]

NARRATIVE: CASE EVENT DATE: 20170927
